FAERS Safety Report 18101274 (Version 2)
Quarter: 2020Q3

REPORT INFORMATION
  Report Type: Spontaneous
  Country: US (occurrence: US)
  Receive Date: 20200801
  Receipt Date: 20200914
  Transmission Date: 20201103
  Serious: No
  Sender: FDA-Public Use
  Company Number: US-ASTRAZENECA-2020SE92732

PATIENT
  Age: 28984 Day
  Sex: Female
  Weight: 67.1 kg

DRUGS (3)
  1. COREG [Concomitant]
     Active Substance: CARVEDILOL
     Indication: BLOOD PRESSURE MEASUREMENT
     Route: 065
     Dates: start: 2009
  2. BRILINTA [Suspect]
     Active Substance: TICAGRELOR
     Indication: MYOCARDIAL INFARCTION
     Route: 048
     Dates: start: 20200613
  3. REPATHA [Concomitant]
     Active Substance: EVOLOCUMAB
     Indication: LDL/HDL RATIO
     Route: 058
     Dates: start: 20200714

REACTIONS (7)
  - Toothache [Unknown]
  - Pain [Unknown]
  - Ear pain [Not Recovered/Not Resolved]
  - Sinus pain [Unknown]
  - Eye pain [Not Recovered/Not Resolved]
  - Lymphadenopathy [Not Recovered/Not Resolved]
  - Pain in jaw [Recovering/Resolving]

NARRATIVE: CASE EVENT DATE: 20200718
